FAERS Safety Report 12417388 (Version 1)
Quarter: 2016Q2

REPORT INFORMATION
  Report Type: Report from Study
  Country: US (occurrence: US)
  Receive Date: 20160530
  Receipt Date: 20160530
  Transmission Date: 20160815
  Serious: Yes (Other)
  Sender: FDA-Public Use
  Company Number: US-JNJFOC-20140202741

PATIENT
  Age: 56 Year
  Sex: Male
  Weight: 122.47 kg

DRUGS (9)
  1. REMICADE [Suspect]
     Active Substance: INFLIXIMAB
     Indication: ARTHRALGIA
     Dosage: ABOUT 12 TO 13 WEEKS AGO
     Route: 042
     Dates: start: 2013
  2. REMICADE [Suspect]
     Active Substance: INFLIXIMAB
     Indication: PSORIASIS
     Route: 042
     Dates: start: 20140124
  3. VYTORIN [Concomitant]
     Active Substance: EZETIMIBE\SIMVASTATIN
     Indication: BLOOD CHOLESTEROL
     Route: 048
  4. SYMBICORT [Concomitant]
     Active Substance: BUDESONIDE\FORMOTEROL FUMARATE DIHYDRATE
     Indication: ASTHMA
     Route: 048
  5. ALBUTEROL. [Concomitant]
     Active Substance: ALBUTEROL
     Indication: ASTHMA
     Dosage: AS NEEDED
     Route: 048
  6. CYMBALTA [Concomitant]
     Active Substance: DULOXETINE HYDROCHLORIDE
     Indication: ANXIETY
     Route: 048
     Dates: start: 2013
  7. REMICADE [Suspect]
     Active Substance: INFLIXIMAB
     Indication: ARTHRALGIA
     Route: 042
     Dates: start: 20140124
  8. REMICADE [Suspect]
     Active Substance: INFLIXIMAB
     Indication: PSORIASIS
     Dosage: ABOUT 12 TO 13 WEEKS AGO
     Route: 042
     Dates: start: 2013
  9. TOPROL XL [Concomitant]
     Active Substance: METOPROLOL SUCCINATE
     Indication: HYPERTENSION
     Route: 048

REACTIONS (6)
  - Bronchitis [Recovered/Resolved]
  - Product use issue [Unknown]
  - Drug ineffective [Not Recovered/Not Resolved]
  - Oral herpes [Not Recovered/Not Resolved]
  - Pulmonary congestion [Not Recovered/Not Resolved]
  - Oropharyngeal pain [Not Recovered/Not Resolved]

NARRATIVE: CASE EVENT DATE: 2013
